FAERS Safety Report 4683079-1 (Version None)
Quarter: 2005Q2

REPORT INFORMATION
  Report Type: 
  Country: None (occurrence: None)
  Receive Date: 20050602
  Receipt Date: 20050323
  Transmission Date: 20051028
  Serious: No
  Sender: FDA-Public Use
  Company Number: USA050394039

PATIENT
  Sex: Male

DRUGS (4)
  1. CYMBALTA [Suspect]
     Dosage: 60 MG DAY
     Dates: start: 20050101
  2. NEXIUM [Concomitant]
  3. LIPITOR [Concomitant]
  4. MEDICATION [Concomitant]

REACTIONS (2)
  - AMNESIA [None]
  - FEELING ABNORMAL [None]
